FAERS Safety Report 7116213-4 (Version None)
Quarter: 2010Q4

REPORT INFORMATION
  Report Type: 
  Country: None (occurrence: None)
  Receive Date: 20101122
  Receipt Date: 20091125
  Transmission Date: 20110411
  Serious: Yes (Death, Life-Threatening)
  Sender: FDA-Public Use
  Company Number: FR-ASTRAZENECA-2009SE28767

PATIENT
  Age: 76 Year
  Sex: Female
  Weight: 120 kg

DRUGS (8)
  1. CRESTOR [Suspect]
     Route: 048
     Dates: end: 20090909
  2. COMPETACT [Suspect]
     Indication: TYPE 2 DIABETES MELLITUS
     Route: 048
     Dates: end: 20090909
  3. PERINDOPRIL ERBUMINE [Suspect]
     Route: 048
     Dates: end: 20090909
  4. PREVISCAN [Suspect]
     Route: 048
     Dates: end: 20090909
  5. ALLOPURINOL [Suspect]
     Route: 048
     Dates: end: 20090909
  6. LASILIX [Suspect]
     Route: 048
     Dates: end: 20090909
  7. TRINIPATCH [Suspect]
     Route: 062
     Dates: end: 20090909
  8. BISOPROLOL [Suspect]
     Route: 048
     Dates: end: 20090909

REACTIONS (10)
  - ALANINE AMINOTRANSFERASE INCREASED [None]
  - ASPARTATE AMINOTRANSFERASE INCREASED [None]
  - HAEMODIALYSIS [None]
  - HAEMODYNAMIC INSTABILITY [None]
  - HYPERCALCAEMIA [None]
  - HYPERKALAEMIA [None]
  - LACTIC ACIDOSIS [None]
  - POSTOPERATIVE RENAL FAILURE [None]
  - RENAL FAILURE ACUTE [None]
  - SEPTIC SHOCK [None]
